FAERS Safety Report 21296462 (Version 2)
Quarter: 2022Q3

REPORT INFORMATION
  Report Type: Report from Study
  Country: ES (occurrence: None)
  Receive Date: 20220906
  Receipt Date: 20220909
  Transmission Date: 20221026
  Serious: Yes (Hospitalization)
  Sender: FDA-Public Use
  Company Number: ES-ROCHE-3172951

PATIENT
  Age: 48 Year
  Sex: Female
  Weight: 56 kg

DRUGS (17)
  1. ATEZOLIZUMAB [Suspect]
     Active Substance: ATEZOLIZUMAB
     Indication: Pancreatic carcinoma metastatic
     Dosage: ON 26/AUG/2022, SHE HAD RECEIVED MOST RECENT DOSE OF ATEZOLIZUMAB ADMIN PRIOR AE WAS 840 MG
     Route: 041
     Dates: start: 20201126
  2. TIRAGOLUMAB [Suspect]
     Active Substance: TIRAGOLUMAB
     Indication: Pancreatic carcinoma metastatic
     Dosage: ON 26/AUG/2022, SHE HAD RECEIVED MOST RECENT DOSE OF TIRAGOLUMAB ADMIN PRIOR AE WAS 420 MG
     Route: 042
     Dates: start: 20201126
  3. GEMCITABINE [Suspect]
     Active Substance: GEMCITABINE
     Indication: Pancreatic carcinoma metastatic
     Dosage: ON DAYS 1, 8, AND 15 OF EACH 28 DAY CYCLE?ON 26/AUG/2022, SHE HAD RECEIVED MOST RECENT DOSE OF GEMCI
     Route: 042
     Dates: start: 20201126
  4. PACLITAXEL [Suspect]
     Active Substance: PACLITAXEL
     Indication: Pancreatic carcinoma metastatic
     Dosage: ON DAYS 1, 8, AND 15 OF EACH 28 DAY CYCLE?ON 26/AUG/2022, SHE HAD RECEIVED MOST RECENT DOSE OF NAB-P
     Route: 042
     Dates: start: 20201126
  5. POTASSIUM CHLORIDE [Concomitant]
     Active Substance: POTASSIUM CHLORIDE
     Indication: Hypokalaemia
     Route: 048
     Dates: start: 20201203
  6. MAGNOGENE [Concomitant]
     Indication: Hypomagnesaemia
     Dosage: MEDICATION DOSE : 1 OTHER
     Route: 048
     Dates: start: 20210226
  7. FERPLEX [Concomitant]
     Indication: Anaemia
     Route: 048
     Dates: start: 20210121
  8. ACETAMINOPHEN [Concomitant]
     Active Substance: ACETAMINOPHEN
     Indication: Flank pain
     Route: 048
     Dates: start: 202008
  9. ASPIRIN [Concomitant]
     Active Substance: ASPIRIN
     Dosage: INDICATION: FAMILIAL HISTORY OF ISCHEMIC HEART DISEASE PREVENTION
     Route: 048
     Dates: start: 2010
  10. ENOXAPARIN SODIUM [Concomitant]
     Active Substance: ENOXAPARIN SODIUM
     Route: 058
     Dates: start: 20201013
  11. ATORVASTATIN [Concomitant]
     Active Substance: ATORVASTATIN
     Indication: Dyslipidaemia
     Route: 048
     Dates: start: 2018
  12. FELODIPINE\METOPROLOL SUCCINATE [Concomitant]
     Active Substance: FELODIPINE\METOPROLOL SUCCINATE
     Indication: Hypertension
     Route: 048
     Dates: start: 2010
  13. DESOGESTREL [Concomitant]
     Active Substance: DESOGESTREL
     Indication: Ovarian cyst
     Route: 048
     Dates: start: 2019
  14. PANCRELIPASE [Concomitant]
     Active Substance: PANCRELIPASE
     Indication: Pancreatic failure
     Route: 048
     Dates: start: 202009
  15. METFORMIN [Concomitant]
     Active Substance: METFORMIN HYDROCHLORIDE
     Indication: Pancreatic failure
     Dates: start: 202008
  16. OMEPRAZOLE [Concomitant]
     Active Substance: OMEPRAZOLE
     Route: 048
     Dates: start: 2019
  17. HYDROCHLOROTHIAZIDE\TELMISARTAN [Concomitant]
     Active Substance: HYDROCHLOROTHIAZIDE\TELMISARTAN
     Indication: Hypertension
     Route: 048
     Dates: start: 2010

REACTIONS (1)
  - Hidradenitis [Recovered/Resolved]

NARRATIVE: CASE EVENT DATE: 20220831
